FAERS Safety Report 23415024 (Version 1)
Quarter: 2024Q1

REPORT INFORMATION
  Report Type: Spontaneous
  Country: TR (occurrence: TR)
  Receive Date: 20240118
  Receipt Date: 20240118
  Transmission Date: 20240409
  Serious: Yes (Life-Threatening, Other)
  Sender: FDA-Public Use
  Company Number: TR-002147023-NVSC2024TR010486

PATIENT
  Sex: Male

DRUGS (2)
  1. TRILEPTAL [Suspect]
     Active Substance: OXCARBAZEPINE
     Indication: Epilepsy
     Dosage: 1200 MG, QD (600 MG IN THE MORNING AND 600 MG IN THE EVENING, FOR 15 YEARS)
     Route: 065
  2. TRILEPTAL [Suspect]
     Active Substance: OXCARBAZEPINE
     Dosage: UNK (STRENGTH 30 MG FILM COATED TABLET)
     Route: 065

REACTIONS (4)
  - Seizure [Unknown]
  - Drug withdrawal syndrome [Unknown]
  - Freezing phenomenon [Unknown]
  - Product supply issue [Unknown]
